FAERS Safety Report 9023982 (Version 2)
Quarter: 2013Q2

REPORT INFORMATION
  Report Type: Spontaneous
  Country: US (occurrence: US)
  Receive Date: 20130122
  Receipt Date: 20130419
  Transmission Date: 20140414
  Serious: Yes (Life-Threatening, Hospitalization)
  Sender: FDA-Public Use
  Company Number: US-MERCK-1301USA009165

PATIENT
  Sex: Male
  Weight: 80.27 kg

DRUGS (12)
  1. JANUVIA [Suspect]
     Indication: TYPE 2 DIABETES MELLITUS
     Dosage: 30 MG, QD
     Route: 048
     Dates: end: 20130109
  2. METFORMIN [Concomitant]
  3. ASPIRIN [Concomitant]
     Dosage: 81 MG, QD
  4. ALLOPURINOL [Concomitant]
     Dosage: 300 MG, QD
  5. VYTORIN [Concomitant]
     Indication: HYPERCHOLESTEROLAEMIA
     Dosage: 10/40 DAILY
  6. METOPROLOL TARTRATE [Concomitant]
     Indication: HYPERTENSION
     Dosage: 50 MG, BID
  7. VITAMIN D (UNSPECIFIED) [Concomitant]
     Dosage: 1000 UNIT DAILY
  8. CYANOCOBALAMIN [Concomitant]
     Dosage: 1000 MG, QD
  9. GLIMEPIRIDE [Concomitant]
     Indication: TYPE 2 DIABETES MELLITUS
     Dosage: 2 MG, BID
  10. LEVEMIR [Concomitant]
     Dosage: 38 UNITS AT BEDTIME
  11. LORAZEPAM [Concomitant]
     Dosage: 1.5MG AT BEDTIME
  12. CALCITRIOL [Concomitant]
     Indication: RENAL FAILURE
     Dosage: 0.5 MG, TIW

REACTIONS (1)
  - Pancreatitis [Recovering/Resolving]
